FAERS Safety Report 25965101 (Version 4)
Quarter: 2025Q4

REPORT INFORMATION
  Report Type: Spontaneous
  Country: US (occurrence: US)
  Receive Date: 20251027
  Receipt Date: 20251125
  Transmission Date: 20260118
  Serious: No
  Sender: BIOGEN
  Company Number: US-BIOGEN-2087738

PATIENT
  Age: 19 Year
  Sex: Male

DRUGS (1)
  1. SPINRAZA [Suspect]
     Active Substance: NUSINERSEN
     Indication: Spinal muscular atrophy

REACTIONS (4)
  - Post lumbar puncture syndrome [Unknown]
  - Procedural nausea [Unknown]
  - Procedural vomiting [Unknown]
  - Sacral pain [Unknown]

NARRATIVE: CASE EVENT DATE: 20240124
